FAERS Safety Report 15624240 (Version 1)
Quarter: 2018Q4

REPORT INFORMATION
  Report Type: Spontaneous
  Country: DE (occurrence: US)
  Receive Date: 20181116
  Receipt Date: 20181116
  Transmission Date: 20190205
  Serious: Yes (Hospitalization, Other)
  Sender: FDA-Public Use
  Company Number: DE-B.I. PHARMACEUTICALS,INC./RIDGEFIELD-2018-12-003678

PATIENT
  Age: 69 Year
  Sex: Female

DRUGS (4)
  1. OFEV [Suspect]
     Active Substance: NINTEDANIB
     Indication: IDIOPATHIC PULMONARY FIBROSIS
     Dosage: 150 MG, BID
     Route: 048
     Dates: start: 20170103
  2. OPSUMIT [Suspect]
     Active Substance: MACITENTAN
     Indication: PULMONARY ARTERIAL HYPERTENSION
     Route: 048
  3. ADEMPAS [Concomitant]
     Active Substance: RIOCIGUAT
     Indication: PRODUCT USED FOR UNKNOWN INDICATION
     Route: 065
  4. VELETRI [Suspect]
     Active Substance: EPOPROSTENOL
     Indication: PULMONARY ARTERIAL HYPERTENSION
     Route: 042

REACTIONS (26)
  - Weight increased [Unknown]
  - Nocturnal dyspnoea [Unknown]
  - Productive cough [Unknown]
  - Diarrhoea [Unknown]
  - Central venous pressure increased [Unknown]
  - Abdominal distension [Unknown]
  - Gait inability [Unknown]
  - Device occlusion [Unknown]
  - Complication associated with device [Unknown]
  - Deafness [Unknown]
  - Respiratory rate increased [Unknown]
  - Heart rate increased [Unknown]
  - Hernia [Unknown]
  - Hypoacusis [Unknown]
  - Blood sodium increased [Unknown]
  - Gastric disorder [Unknown]
  - Constipation [Unknown]
  - Dyspepsia [Unknown]
  - Tremor [Unknown]
  - Abdominal pain [Unknown]
  - Ear discomfort [Unknown]
  - Gastroenteritis viral [Unknown]
  - Pneumonia [Unknown]
  - Central venous catheterisation [Unknown]
  - Cough [Unknown]
  - Dizziness [Unknown]

NARRATIVE: CASE EVENT DATE: 20170821
